FAERS Safety Report 7148851-7 (Version None)
Quarter: 2010Q4

REPORT INFORMATION
  Report Type: 
  Country: None (occurrence: None)
  Receive Date: 20101124
  Receipt Date: 20101116
  Transmission Date: 20110411
  Serious: Yes (Hospitalization)
  Sender: FDA-Public Use
  Company Number: UTC-002445

PATIENT
  Age: 50 Year
  Sex: Female
  Weight: 109.5 kg

DRUGS (1)
  1. TYVASO [Suspect]
     Dosage: 54 MCG, INHALATION
     Route: 055
     Dates: start: 20100509

REACTIONS (2)
  - OXYGEN SATURATION DECREASED [None]
  - SYNCOPE [None]
